FAERS Safety Report 9692115 (Version 1)
Quarter: 2013Q4

REPORT INFORMATION
  Report Type: Spontaneous
  Country: US (occurrence: US)
  Receive Date: 20131118
  Receipt Date: 20131118
  Transmission Date: 20140711
  Serious: Yes (Other)
  Sender: FDA-Public Use
  Company Number: US-BIOGENIDEC-2013BI109995

PATIENT
  Sex: Female
  Weight: 84 kg

DRUGS (14)
  1. AVONEX [Suspect]
     Indication: MULTIPLE SCLEROSIS
     Route: 030
     Dates: start: 20010409
  2. AVONEX [Suspect]
     Indication: MULTIPLE SCLEROSIS
     Route: 030
     Dates: start: 20130813
  3. FAMOTIDINE [Concomitant]
     Route: 048
     Dates: start: 20121214
  4. LISINOPRIL [Concomitant]
     Route: 048
  5. LISINOPRIL [Concomitant]
     Route: 048
     Dates: start: 20131008
  6. GABAPENTIN [Concomitant]
     Route: 048
     Dates: start: 20131008
  7. BENADRYL ALLERGY [Concomitant]
     Indication: SLEEP DISORDER
     Route: 048
     Dates: start: 20130308
  8. VIMPAT [Concomitant]
     Route: 048
     Dates: start: 20131008
  9. XANAX [Concomitant]
     Route: 048
     Dates: start: 20130513
  10. AMLODIPINE BESYLATE [Concomitant]
     Route: 048
     Dates: start: 20130904
  11. HYDROCODONE-ACETAMINOPHEN [Concomitant]
     Route: 048
     Dates: start: 20130911
  12. CLOPIDOGREL BISULFATE [Concomitant]
     Route: 048
     Dates: start: 20131008
  13. TYLENOL WITH CODEINE #3 [Concomitant]
     Route: 048
     Dates: start: 20131010
  14. ALPRAZOLAM [Concomitant]
     Route: 048

REACTIONS (3)
  - Cerebrovascular accident [Unknown]
  - Cerebrovascular disorder [Unknown]
  - Pain [Unknown]
